FAERS Safety Report 6525957-4 (Version None)
Quarter: 2010Q1

REPORT INFORMATION
  Report Type: 
  Country: None (occurrence: None)
  Receive Date: 20100104
  Receipt Date: 20091222
  Transmission Date: 20100710
  Serious: Yes (Other)
  Sender: FDA-Public Use
  Company Number: PHHY2009JP12987

PATIENT
  Sex: Male

DRUGS (4)
  1. AMN107 AMN+CAP [Suspect]
     Indication: CHRONIC MYELOID LEUKAEMIA
     Dosage: 800 MG DAILY
     Route: 048
     Dates: start: 20090316, end: 20090330
  2. AMN107 AMN+CAP [Suspect]
     Dosage: 200 MG DAILY
     Route: 048
     Dates: start: 20090420
  3. GASTER D [Concomitant]
     Indication: PROPHYLAXIS
     Dosage: 40 MG, UNK
     Route: 048
     Dates: start: 20070730
  4. CALONAL [Concomitant]
     Indication: PYREXIA
     Dosage: 200 MG, UNK
     Route: 048
     Dates: start: 20090330

REACTIONS (6)
  - ATRIOVENTRICULAR BLOCK FIRST DEGREE [None]
  - ATRIOVENTRICULAR BLOCK SECOND DEGREE [None]
  - BLOOD GLUCOSE INCREASED [None]
  - DIARRHOEA [None]
  - PYREXIA [None]
  - RASH ERYTHEMATOUS [None]
